FAERS Safety Report 25505862 (Version 1)
Quarter: 2025Q3

REPORT INFORMATION
  Report Type: Spontaneous
  Country: EU (occurrence: EU)
  Receive Date: 20250702
  Receipt Date: 20250702
  Transmission Date: 20251021
  Serious: Yes (Death, Hospitalization, Other)
  Sender: ASTELLAS
  Company Number: EU-ASTELLAS-2023US034714

PATIENT
  Age: 82 Year
  Sex: Male

DRUGS (1)
  1. XTANDI [Suspect]
     Active Substance: ENZALUTAMIDE
     Indication: Product used for unknown indication
     Dosage: 160 MG, ONCE DAILY
     Route: 048
     Dates: start: 202210

REACTIONS (7)
  - Death [Fatal]
  - General physical health deterioration [Unknown]
  - Urosepsis [Unknown]
  - Multiple organ dysfunction syndrome [Unknown]
  - Fatigue [Unknown]
  - Hypotension [Unknown]
  - Cardiomegaly [Unknown]

NARRATIVE: CASE EVENT DATE: 20230601
